FAERS Safety Report 18540392 (Version 6)
Quarter: 2021Q2

REPORT INFORMATION
  Report Type: Spontaneous
  Country: US (occurrence: US)
  Receive Date: 20201124
  Receipt Date: 20210614
  Transmission Date: 20210717
  Serious: Yes (Other)
  Sender: FDA-Public Use
  Company Number: US-PFIZER INC-2019467356

PATIENT
  Age: 46 Year
  Sex: Male

DRUGS (7)
  1. XALATAN [Suspect]
     Active Substance: LATANOPROST
     Dosage: 2 DROP, 1X/DAY (ONE ON EACH EYE)
     Route: 047
  2. PRED FORTE [Concomitant]
     Active Substance: PREDNISOLONE ACETATE
     Dosage: 1 %, 4X/DAY
     Route: 047
  3. XALATAN [Suspect]
     Active Substance: LATANOPROST
     Dosage: 0.5 (UNIT NOT PROVIDED), 1X/DAY
     Route: 047
  4. XALATAN [Suspect]
     Active Substance: LATANOPROST
     Indication: INTRAOCULAR PRESSURE TEST ABNORMAL
     Dosage: 1 DROP, 1X/DAY
     Route: 047
  5. XALATAN [Suspect]
     Active Substance: LATANOPROST
     Dosage: UNK, 2X/DAY
     Route: 047
  6. XALATAN [Suspect]
     Active Substance: LATANOPROST
     Dosage: 125 UG, 1X/DAY
     Route: 047
  7. XALATAN [Suspect]
     Active Substance: LATANOPROST
     Dosage: 2 DROP, DAILY (0.05 %/ 005%,INSTILL ONE DROP INTO BOTH EYES DAILY;3 BOTTLES(2.5 ML),3 MONTHS SUPPLY)
     Route: 047

REACTIONS (3)
  - Off label use [Unknown]
  - Product prescribing error [Unknown]
  - Blindness [Unknown]
